FAERS Safety Report 7684352-5 (Version None)
Quarter: 2011Q3

REPORT INFORMATION
  Report Type: 
  Country: None (occurrence: None)
  Receive Date: 20110816
  Receipt Date: 20110809
  Transmission Date: 20111222
  Serious: Yes (Hospitalization)
  Sender: FDA-Public Use
  Company Number: BE-BRISTOL-MYERS SQUIBB COMPANY-15155088

PATIENT
  Age: 67 Year
  Sex: Male
  Weight: 80 kg

DRUGS (4)
  1. GEMCITABINE [Suspect]
     Indication: NON-SMALL CELL LUNG CANCER
     Dosage: RECENT DOSE: 01JUN2010;DAY 1,8 OF 3 WEEK CYCLE
     Route: 042
     Dates: start: 20100525
  2. CISPLATIN [Suspect]
     Indication: NON-SMALL CELL LUNG CANCER
     Dosage: DAY 1
     Route: 042
     Dates: start: 20100526
  3. CILENGITIDE [Suspect]
     Indication: NON-SMALL CELL LUNG CANCER
     Dosage: RECENT DOSE:01JUN2010;  REDUCED TO 1500MG, 428.5714MG UNK-ONG
     Route: 042
     Dates: start: 20100525
  4. CETUXIMAB [Suspect]
     Indication: NON-SMALL CELL LUNG CANCER
     Dosage: RECENT INF ON: 01JUN2010;STRENGTH: 5MG/ML.
     Route: 042
     Dates: start: 20100525

REACTIONS (2)
  - EPISTAXIS [None]
  - THROMBOCYTOPENIA [None]
